FAERS Safety Report 10156174 (Version 1)
Quarter: 2014Q2

REPORT INFORMATION
  Report Type: Spontaneous
  Country: US (occurrence: US)
  Receive Date: 20140506
  Receipt Date: 20140506
  Transmission Date: 20141212
  Serious: No
  Sender: FDA-Public Use
  Company Number: US-009507513-2012SP009994

PATIENT
  Age: 11 Year
  Sex: Female
  Weight: 54.43 kg

DRUGS (4)
  1. CLARITIN [Suspect]
     Indication: COUGH
     Dosage: 10 MG, ONCE
     Route: 048
     Dates: start: 20120214
  2. CLARITIN [Suspect]
     Indication: HYPERSENSITIVITY
     Dosage: 10 MG, QAM
     Route: 048
     Dates: start: 20120215
  3. CLARITIN [Suspect]
     Indication: MEDICAL OBSERVATION
  4. MOTRIN [Concomitant]
     Indication: HEADACHE
     Dosage: UNK UNK, UNKNOWN

REACTIONS (1)
  - Overdose [Not Recovered/Not Resolved]
